FAERS Safety Report 21528948 (Version 1)
Quarter: 2022Q4

REPORT INFORMATION
  Report Type: Spontaneous
  Country: US (occurrence: US)
  Receive Date: 20221031
  Receipt Date: 20221031
  Transmission Date: 20230112
  Serious: No
  Sender: FDA-Public Use
  Company Number: US-PFIZER INC-202201258975

PATIENT
  Age: 55 Year
  Sex: Male
  Weight: 106.56 kg

DRUGS (1)
  1. LEVOXYL [Suspect]
     Active Substance: LEVOTHYROXINE SODIUM
     Indication: Hypothyroidism

REACTIONS (8)
  - Drug ineffective [Unknown]
  - Hyperhidrosis [Unknown]
  - Temperature regulation disorder [Unknown]
  - Feeling cold [Unknown]
  - Hot flush [Unknown]
  - Weight increased [Unknown]
  - Product physical issue [Unknown]
  - Product prescribing error [Unknown]
